FAERS Safety Report 8619155-8 (Version None)
Quarter: 2012Q3

REPORT INFORMATION
  Report Type: 
  Country: None (occurrence: None)
  Receive Date: 20120824
  Receipt Date: 20120814
  Transmission Date: 20120928
  Serious: Yes (Hospitalization, Disabling, Other)
  Sender: FDA-Public Use
  Company Number: US-009507513-1206USA04860

PATIENT

DRUGS (4)
  1. FLOVENT [Concomitant]
     Dosage: UNK
  2. ATROVENT [Concomitant]
  3. FOSAMAX [Suspect]
     Dosage: UNK
     Route: 048
  4. FOSAMAX [Suspect]
     Indication: OSTEOPOROSIS
     Dosage: 70 MG, QW
     Route: 048
     Dates: start: 20031009, end: 20080122

REACTIONS (36)
  - OSTEOPOROSIS [None]
  - LOW TURNOVER OSTEOPATHY [None]
  - MYOCARDIAL INFARCTION [None]
  - PERIPHERAL VASCULAR DISORDER [None]
  - TRICUSPID VALVE INCOMPETENCE [None]
  - MUSCLE SPASMS [None]
  - EXTERNAL FIXATION OF FRACTURE [None]
  - DIABETES MELLITUS [None]
  - GOUT [None]
  - CARDIAC FAILURE CONGESTIVE [None]
  - DILATATION VENTRICULAR [None]
  - KNEE OPERATION [None]
  - PROCEDURAL HYPOTENSION [None]
  - OEDEMA PERIPHERAL [None]
  - ANKLE FRACTURE [None]
  - EJECTION FRACTION DECREASED [None]
  - ARTHROSCOPY [None]
  - URINARY TRACT INFECTION [None]
  - HYPERKALAEMIA [None]
  - FEMUR FRACTURE [None]
  - CHRONIC OBSTRUCTIVE PULMONARY DISEASE [None]
  - ISCHAEMIC CARDIOMYOPATHY [None]
  - VENTRICULAR HYPOKINESIA [None]
  - DRUG INEFFECTIVE [None]
  - INTERNAL FIXATION OF FRACTURE [None]
  - STRESS FRACTURE [None]
  - SPLEEN OPERATION [None]
  - RENAL FAILURE CHRONIC [None]
  - HYPERHIDROSIS [None]
  - CORONARY ARTERY DISEASE [None]
  - CATARACT [None]
  - CARDIAC ASTHMA [None]
  - CORNEAL DEGENERATION [None]
  - CATARACT OPERATION [None]
  - HYPERCALCAEMIA [None]
  - BACK PAIN [None]
